FAERS Safety Report 4831323-X (Version None)
Quarter: 2005Q4

REPORT INFORMATION
  Report Type: 
  Country: None (occurrence: None)
  Receive Date: 20051116
  Receipt Date: 20051116
  Transmission Date: 20060501
  Serious: Yes (Hospitalization)
  Sender: FDA-Public Use
  Company Number: None

PATIENT
  Age: 47 Year
  Sex: Female
  Weight: 61.6 kg

DRUGS (1)
  1. SPIRONOLACTONE [Suspect]
     Indication: ASCITES
     Dosage: 100MG BID PO
     Route: 048

REACTIONS (2)
  - HYPOKALAEMIA [None]
  - TREATMENT NONCOMPLIANCE [None]
